FAERS Safety Report 9316400 (Version 2)
Quarter: 2013Q3

REPORT INFORMATION
  Report Type: Spontaneous
  Country: US (occurrence: US)
  Receive Date: 20130530
  Receipt Date: 20130709
  Transmission Date: 20140515
  Serious: Yes (Other)
  Sender: FDA-Public Use
  Company Number: US-TEVA-408281USA

PATIENT
  Age: 69 Year
  Sex: Female
  Weight: 58.57 kg

DRUGS (10)
  1. COPAXONE [Suspect]
     Indication: RELAPSING-REMITTING MULTIPLE SCLEROSIS
     Dates: start: 20030301, end: 201305
  2. CRESTOR [Concomitant]
     Indication: BLOOD CHOLESTEROL INCREASED
  3. ALPRAZOLAM [Concomitant]
  4. ASPIRIN [Concomitant]
  5. VITAMIN D3 [Concomitant]
  6. VITAMIN B12 [Concomitant]
  7. COENZYME Q10 [Concomitant]
  8. BENADRYL [Concomitant]
  9. IBUPROFEN [Concomitant]
  10. OMEGA 3 FISH OIL [Concomitant]

REACTIONS (1)
  - Non-Hodgkin^s lymphoma [Not Recovered/Not Resolved]
